FAERS Safety Report 4930808-5 (Version None)
Quarter: 2006Q1

REPORT INFORMATION
  Report Type: 
  Country: None (occurrence: None)
  Receive Date: 20060227
  Receipt Date: 20060214
  Transmission Date: 20060701
  Serious: Yes (Other)
  Sender: FDA-Public Use
  Company Number: 221999

PATIENT
  Age: 5 Year
  Sex: Male
  Weight: 10.7 kg

DRUGS (2)
  1. NUTROPIN [Suspect]
     Indication: GROWTH HORMONE DEFICIENCY
     Dosage: 0.3 MG, QOD, SUBCUTANEOUS
     Route: 058
     Dates: start: 20051108, end: 20060202
  2. L-THYROXINE (LEVOTHYROXINE SODIUM) [Concomitant]

REACTIONS (2)
  - ASTROCYTOMA [None]
  - NEOPLASM PROGRESSION [None]
